FAERS Safety Report 8732363 (Version 2)
Quarter: 2012Q4

REPORT INFORMATION
  Report Type: 
  Country: FR (occurrence: FR)
  Receive Date: 20120820
  Receipt Date: 20120924
  Transmission Date: 20130627
  Serious: Yes (Other)
  Sender: FDA-Public Use
  Company Number: FR-VIIV HEALTHCARE LIMITED-B0821709A

PATIENT
  Age: 43 None
  Sex: Male

DRUGS (3)
  1. KIVEXA [Suspect]
     Indication: HIV INFECTION CDC CATEGORY C2
     Dosage: 1UNIT Per day
     Route: 048
     Dates: start: 20111216, end: 20120130
  2. NORVIR [Concomitant]
     Indication: HIV INFECTION CDC CATEGORY C2
     Dosage: 1UNIT Per day
     Route: 048
  3. REYATAZ [Concomitant]
     Indication: HIV INFECTION CDC CATEGORY C2
     Dosage: 1UNIT Per day
     Route: 048

REACTIONS (3)
  - Dyspnoea [Recovered/Resolved]
  - Malaise [Recovered/Resolved]
  - Drug intolerance [Recovered/Resolved]
